FAERS Safety Report 8075970-3 (Version None)
Quarter: 2012Q1

REPORT INFORMATION
  Report Type: 
  Country: None (occurrence: None)
  Receive Date: 20120127
  Receipt Date: 20110113
  Transmission Date: 20120608
  Serious: No
  Sender: FDA-Public Use
  Company Number: US-GLAXOSMITHKLINE-A0906737A

PATIENT
  Age: 53 Year
  Sex: Female

DRUGS (7)
  1. WELLBUTRIN [Suspect]
     Indication: PRODUCT USED FOR UNKNOWN INDICATION
     Dates: end: 20100101
  2. REMICADE [Concomitant]
  3. EFFEXOR [Suspect]
     Indication: ARTHRITIS
     Dosage: 75MG PER DAY
     Route: 048
     Dates: start: 20070101, end: 20100101
  4. UNSPECIFIED MEDICATION [Concomitant]
  5. CYMBALTA [Concomitant]
     Indication: PRODUCT USED FOR UNKNOWN INDICATION
     Dates: end: 20100101
  6. MIRAPEX [Concomitant]
  7. HUMIRA [Concomitant]

REACTIONS (2)
  - AGITATION [None]
  - WEIGHT INCREASED [None]
